FAERS Safety Report 13243875 (Version 1)
Quarter: 2017Q1

REPORT INFORMATION
  Report Type: Spontaneous
  Country: US (occurrence: US)
  Receive Date: 20170217
  Receipt Date: 20170217
  Transmission Date: 20170428
  Serious: Yes (Hospitalization)
  Sender: FDA-Public Use
  Company Number: None

PATIENT
  Age: 39 Year
  Sex: Female
  Weight: 69.1 kg

DRUGS (3)
  1. CARBOPLATIN. [Suspect]
     Active Substance: CARBOPLATIN
     Dates: end: 20170209
  2. TAXOL [Suspect]
     Active Substance: PACLITAXEL
     Dates: end: 20170209
  3. CISPLATIN. [Suspect]
     Active Substance: CISPLATIN
     Dates: end: 20161212

REACTIONS (4)
  - Bacterial test positive [None]
  - Asthenia [None]
  - Dizziness [None]
  - Eating disorder [None]

NARRATIVE: CASE EVENT DATE: 20170209
